FAERS Safety Report 18000328 (Version 1)
Quarter: 2020Q3

REPORT INFORMATION
  Report Type: Spontaneous
  Country: US (occurrence: US)
  Receive Date: 20200709
  Receipt Date: 20200709
  Transmission Date: 20201103
  Serious: No
  Sender: FDA-Public Use
  Company Number: US-009507513-2006USA010126

PATIENT
  Age: 14 Year
  Sex: Male

DRUGS (3)
  1. TEMODAR [Suspect]
     Active Substance: TEMOZOLOMIDE
     Indication: GLIOBLASTOMA
     Dosage: 90 MILLIGRAM/SQ. METER
     Dates: start: 201804, end: 201806
  2. TEMODAR [Suspect]
     Active Substance: TEMOZOLOMIDE
     Dosage: UNK
     Dates: start: 201807, end: 201812
  3. LOMUSTINE. [Suspect]
     Active Substance: LOMUSTINE
     Indication: GLIOBLASTOMA
     Dosage: UNK
     Dates: start: 201807, end: 201812

REACTIONS (2)
  - Product administered to patient of inappropriate age [Unknown]
  - Drug resistance [Unknown]

NARRATIVE: CASE EVENT DATE: 201804
